FAERS Safety Report 18978441 (Version 1)
Quarter: 2021Q1

REPORT INFORMATION
  Report Type: Report from Study
  Country: None (occurrence: US)
  Receive Date: 20210307
  Receipt Date: 20210307
  Transmission Date: 20210420
  Serious: Yes (Hospitalization)
  Sender: FDA-Public Use
  Company Number: US-ABBVIE-21K-163-3801201-00

PATIENT
  Age: 42 Year
  Sex: Male

DRUGS (1)
  1. RINVOQ [Suspect]
     Active Substance: UPADACITINIB
     Indication: RHEUMATOID ARTHRITIS
     Route: 048

REACTIONS (4)
  - Rib fracture [Unknown]
  - Upper limb fracture [Unknown]
  - Road traffic accident [Recovering/Resolving]
  - Lung perforation [Unknown]

NARRATIVE: CASE EVENT DATE: 20210227
